FAERS Safety Report 13405931 (Version 2)
Quarter: 2017Q2

REPORT INFORMATION
  Report Type: Spontaneous
  Country: US (occurrence: US)
  Receive Date: 20170405
  Receipt Date: 20170609
  Transmission Date: 20170830
  Serious: No
  Sender: FDA-Public Use
  Company Number: US-GLAXOSMITHKLINE-US2017046543

PATIENT
  Age: 91 Year
  Sex: Male

DRUGS (1)
  1. EX-LAX UNKNOWN [Suspect]
     Active Substance: SENNOSIDES
     Indication: PRODUCT USED FOR UNKNOWN INDICATION
     Dosage: UNK

REACTIONS (3)
  - Drug ineffective [Unknown]
  - Constipation [Unknown]
  - Incorrect drug administration duration [Unknown]
